FAERS Safety Report 8372452-6 (Version None)
Quarter: 2012Q2

REPORT INFORMATION
  Report Type: 
  Country: None (occurrence: None)
  Receive Date: 20120521
  Receipt Date: 20120509
  Transmission Date: 20120825
  Serious: Yes (Hospitalization)
  Sender: FDA-Public Use
  Company Number: AU-UCBSA-054943

PATIENT
  Age: 17 Year
  Sex: Female
  Weight: 40 kg

DRUGS (7)
  1. PHENOBARBITAL TAB [Concomitant]
  2. OXCARBAZEPINE [Concomitant]
  3. VALPROATE SODIUM [Concomitant]
  4. CLONAZEPAM [Concomitant]
     Route: 042
  5. LACOSAMIDE [Suspect]
     Indication: STATUS EPILEPTICUS
     Route: 040
  6. LACOSAMIDE [Suspect]
     Dosage: INITIAL DOSE 100 MG TWICE IN 2 HOURS
     Route: 040
  7. LEVETIRACETAM [Concomitant]

REACTIONS (1)
  - OCULOGYRIC CRISIS [None]
